FAERS Safety Report 6402069-1 (Version None)
Quarter: 2009Q4

REPORT INFORMATION
  Report Type: 
  Country: None (occurrence: None)
  Receive Date: 20091015
  Receipt Date: 20091006
  Transmission Date: 20100525
  Serious: Yes (Hospitalization)
  Sender: FDA-Public Use
  Company Number: GB-PFIZER INC-2009278671

PATIENT
  Age: 37 Year

DRUGS (2)
  1. CLINDAMYCIN HCL [Suspect]
     Indication: INFECTION
  2. RIFAMPICIN [Suspect]
     Indication: INFECTION
     Dosage: 300 MG, 2X/DAY
     Route: 048
     Dates: start: 20090802, end: 20090923

REACTIONS (1)
  - HEPATITIS ACUTE [None]
